FAERS Safety Report 9778528 (Version 1)
Quarter: 2013Q4

REPORT INFORMATION
  Report Type: Spontaneous
  Country: IT (occurrence: IT)
  Receive Date: 20131223
  Receipt Date: 20131223
  Transmission Date: 20140711
  Serious: Yes (Other)
  Sender: FDA-Public Use
  Company Number: IT-TEVA-451238ISR

PATIENT
  Age: 70 Year
  Sex: Female
  Weight: 54 kg

DRUGS (2)
  1. CARBOPLATINO TEVA [Suspect]
     Indication: LUNG NEOPLASM MALIGNANT
     Dosage: 411.1 MILLIGRAM DAILY;
     Route: 042
     Dates: start: 20131106, end: 20131112
  2. GEMSOL [Suspect]
     Indication: LUNG NEOPLASM MALIGNANT
     Dosage: 1800 MILLIGRAM DAILY;
     Route: 042
     Dates: start: 20131106, end: 20131112

REACTIONS (2)
  - Petechiae [Recovered/Resolved]
  - Thrombocytopenia [Recovered/Resolved]
